FAERS Safety Report 4336191-0 (Version None)
Quarter: 2004Q2

REPORT INFORMATION
  Report Type: 
  Country: None (occurrence: None)
  Receive Date: 20040407
  Receipt Date: 20040220
  Transmission Date: 20050107
  Serious: Yes (Hospitalization, Other)
  Sender: FDA-Public Use
  Company Number: RB-531-2004

PATIENT
  Age: 29 Year
  Sex: Male

DRUGS (3)
  1. BUPRENORPHINE HYDROCHLORIDE [Suspect]
     Indication: DRUG DEPENDENCE
     Dosage: 8 MG QD, SL
     Dates: start: 20040128, end: 20040212
  2. LOMOTIL [Concomitant]
  3. BENADRYL [Concomitant]

REACTIONS (6)
  - BLOOD PRESSURE INADEQUATELY CONTROLLED [None]
  - DIZZINESS [None]
  - HYPOTENSION [None]
  - LUNG CREPITATION [None]
  - PULMONARY TUBERCULOSIS [None]
  - REFUSAL OF TREATMENT BY PATIENT [None]
